FAERS Safety Report 11243908 (Version 1)
Quarter: 2015Q3

REPORT INFORMATION
  Report Type: Spontaneous
  Country: US (occurrence: None)
  Receive Date: 20150702
  Receipt Date: 20150702
  Transmission Date: 20151125
  Serious: Yes (Hospitalization)
  Sender: FDA-Public Use
  Company Number: None

PATIENT
  Age: 82 Year
  Sex: Male
  Weight: 69.9 kg

DRUGS (2)
  1. WARFARIN [Suspect]
     Active Substance: WARFARIN
     Indication: CORONARY ARTERIAL STENT INSERTION
     Dosage: MG  EVERY DAY PO
     Route: 048
     Dates: start: 20150108, end: 20150616
  2. ASPIRIN. [Suspect]
     Active Substance: ASPIRIN
     Indication: CORONARY ARTERIAL STENT INSERTION
     Route: 048
     Dates: start: 20150502, end: 20150616

REACTIONS (4)
  - Gastrointestinal haemorrhage [None]
  - Large intestinal ulcer [None]
  - Large intestine polyp [None]
  - Anaemia [None]

NARRATIVE: CASE EVENT DATE: 20150611
